FAERS Safety Report 9201511 (Version 6)
Quarter: 2016Q4

REPORT INFORMATION
  Report Type: Report from Study
  Country: US (occurrence: US)
  Receive Date: 20130401
  Receipt Date: 20161201
  Transmission Date: 20170207
  Serious: Yes (Hospitalization, Other)
  Sender: FDA-Public Use
  Company Number: US-SANOFI-AVENTIS-2013SA032752

PATIENT
  Age: 32 Year
  Sex: Female
  Weight: 100 kg

DRUGS (16)
  1. AUBAGIO [Suspect]
     Active Substance: TERIFLUNOMIDE
     Indication: MULTIPLE SCLEROSIS
     Route: 048
     Dates: start: 20130315, end: 20130820
  2. ZANTAC [Concomitant]
     Active Substance: RANITIDINE HYDROCHLORIDE
  3. DEXTROMETHORPHAN [Concomitant]
     Active Substance: DEXTROMETHORPHAN
  4. ACYCLOVIR. [Concomitant]
     Active Substance: ACYCLOVIR
  5. AUBAGIO [Suspect]
     Active Substance: TERIFLUNOMIDE
     Indication: MULTIPLE SCLEROSIS
     Route: 048
     Dates: start: 20130315, end: 20130820
  6. PAXIL [Concomitant]
     Active Substance: PAROXETINE HYDROCHLORIDE
  7. SEROQUEL [Concomitant]
     Active Substance: QUETIAPINE FUMARATE
  8. LAMICTAL [Concomitant]
     Active Substance: LAMOTRIGINE
  9. MICARDIS [Concomitant]
     Active Substance: TELMISARTAN
     Indication: BLOOD PRESSURE MEASUREMENT
  10. CALCIUM [Concomitant]
     Active Substance: CALCIUM
  11. METHYLPHENIDATE. [Concomitant]
     Active Substance: METHYLPHENIDATE
  12. RANITIDINE. [Concomitant]
     Active Substance: RANITIDINE
     Indication: ABDOMINAL DISCOMFORT
  13. VITAMIN D [Concomitant]
     Active Substance: CHOLECALCIFEROL
  14. QUINIDINE [Concomitant]
     Active Substance: QUINIDINE
  15. OMEPRAZOLE. [Concomitant]
     Active Substance: OMEPRAZOLE
     Indication: ABDOMINAL SYMPTOM
  16. CONCERTA [Concomitant]
     Active Substance: METHYLPHENIDATE HYDROCHLORIDE

REACTIONS (14)
  - Gait disturbance [Not Recovered/Not Resolved]
  - Alopecia [Not Recovered/Not Resolved]
  - Joint dislocation [Not Recovered/Not Resolved]
  - Fatigue [Unknown]
  - Fall [Not Recovered/Not Resolved]
  - Abdominal discomfort [Recovered/Resolved]
  - Nasopharyngitis [Unknown]
  - Rash [Not Recovered/Not Resolved]
  - JC virus infection [Unknown]
  - Dry mouth [Not Recovered/Not Resolved]
  - Nausea [Recovered/Resolved]
  - Cough [Unknown]
  - Vomiting [Recovered/Resolved]
  - Decreased appetite [Unknown]

NARRATIVE: CASE EVENT DATE: 201303
